FAERS Safety Report 22776555 (Version 4)
Quarter: 2024Q3

REPORT INFORMATION
  Report Type: Report from Study
  Country: JP (occurrence: JP)
  Receive Date: 20230802
  Receipt Date: 20240707
  Transmission Date: 20241016
  Serious: Yes (Hospitalization, Other)
  Sender: ARGENX BVBA
  Company Number: JP-ARGENX-2023-ARGX-JP002517

PATIENT

DRUGS (11)
  1. EFGARTIGIMOD ALFA [Suspect]
     Active Substance: EFGARTIGIMOD ALFA
     Indication: Myasthenia gravis
     Dosage: 400 MG
     Route: 042
     Dates: start: 20221104, end: 20221202
  2. EFGARTIGIMOD ALFA [Suspect]
     Active Substance: EFGARTIGIMOD ALFA
     Dosage: 400 MG
     Route: 042
     Dates: start: 20221228, end: 20230120
  3. EFGARTIGIMOD ALFA [Suspect]
     Active Substance: EFGARTIGIMOD ALFA
     Dosage: 400 MG
     Route: 042
     Dates: start: 20230526, end: 20230616
  4. EFGARTIGIMOD ALFA [Suspect]
     Active Substance: EFGARTIGIMOD ALFA
     Dosage: 400 MG
     Route: 042
     Dates: start: 20230714, end: 20230805
  5. EFGARTIGIMOD ALFA [Suspect]
     Active Substance: EFGARTIGIMOD ALFA
     Dosage: 450 MG
     Route: 042
     Dates: start: 20231226, end: 20240105
  6. EFGARTIGIMOD ALFA [Suspect]
     Active Substance: EFGARTIGIMOD ALFA
     Dosage: 450 MG
     Route: 042
     Dates: start: 20240130, end: 20240130
  7. EFGARTIGIMOD ALFA [Suspect]
     Active Substance: EFGARTIGIMOD ALFA
     Dosage: 450 MG
     Route: 042
     Dates: start: 20240214, end: 20240214
  8. PREDNISOLONE [Suspect]
     Active Substance: PREDNISOLONE
     Indication: Myasthenia gravis
     Dosage: 15-17 MG/DAY
     Route: 048
     Dates: start: 20221018, end: 20230615
  9. PREDNISOLONE [Suspect]
     Active Substance: PREDNISOLONE
     Dosage: UNK
     Route: 048
     Dates: start: 20230616
  10. PROGRAF [Concomitant]
     Active Substance: TACROLIMUS
     Indication: Myasthenia gravis
     Dosage: 4 MG
     Route: 048
     Dates: start: 20221018
  11. MESTINON [Concomitant]
     Active Substance: PYRIDOSTIGMINE BROMIDE
     Indication: Myasthenia gravis
     Dosage: 120 MG
     Route: 048
     Dates: start: 20221018

REACTIONS (7)
  - Myasthenia gravis [Recovered/Resolved]
  - Myasthenia gravis [Recovered/Resolved]
  - Spinal compression fracture [Not Recovered/Not Resolved]
  - Myasthenia gravis [Recovered/Resolved]
  - Myasthenia gravis [Recovered/Resolved]
  - Herpes zoster [Recovered/Resolved]
  - Therapy interrupted [Unknown]

NARRATIVE: CASE EVENT DATE: 20230214
